FAERS Safety Report 7761245-6 (Version None)
Quarter: 2011Q3

REPORT INFORMATION
  Report Type: 
  Country: None (occurrence: None)
  Receive Date: 20110915
  Receipt Date: 20110905
  Transmission Date: 20111222
  Serious: Yes (Other)
  Sender: FDA-Public Use
  Company Number: 2011SP042016

PATIENT
  Age: 32 Year
  Sex: Male

DRUGS (10)
  1. SULPIRIDE [Concomitant]
  2. MIRTAZAPINE [Suspect]
     Indication: DEPRESSION
     Dosage: 15;30 MG, QD, PO
     Route: 048
     Dates: start: 20110222, end: 20110307
  3. MIRTAZAPINE [Suspect]
     Indication: DEPRESSION
     Dosage: 15;30 MG, QD, PO
     Route: 048
     Dates: start: 20110308, end: 20110321
  4. MIRTAZAPINE [Suspect]
     Indication: DEPRESSION
     Dosage: 15;30 MG, QD, PO
     Route: 048
     Dates: start: 20110322, end: 20110530
  5. ETIZOLAM [Concomitant]
  6. ALPRAZOLAM [Concomitant]
  7. SUCRALFATE [Concomitant]
  8. TETRAMIDE [Concomitant]
  9. AMOXAPINE [Concomitant]
  10. FOSFOMYCIN CALCIUM [Concomitant]

REACTIONS (5)
  - LIVER DISORDER [None]
  - HYPERREFLEXIA [None]
  - HEPATIC STEATOSIS [None]
  - WHITE BLOOD CELL COUNT INCREASED [None]
  - HEPATIC FUNCTION ABNORMAL [None]
